FAERS Safety Report 5589101-2 (Version None)
Quarter: 2007Q4

REPORT INFORMATION
  Report Type: 
  Country: None (occurrence: None)
  Receive Date: 20071212
  Receipt Date: 20070501
  Transmission Date: 20080405
  Serious: Yes (Death, Other)
  Sender: FDA-Public Use
  Company Number: USA-2006-0025853

PATIENT
  Age: 20 Year
  Sex: Male
  Weight: 70.3 kg

DRUGS (8)
  1. OXYCONTIN [Suspect]
     Indication: DRUG ABUSER
     Dosage: 80 MG
  2. ALPRAZOLAM [Suspect]
     Indication: DRUG ABUSER
  3. COCAINE (COCAINE) [Suspect]
     Indication: DRUG ABUSER
  4. ECSTASY (METHYLENEDIOXYMETHAMPHETAMINE) [Suspect]
     Indication: DRUG ABUSER
  5. CANNABIS (CANNABIS) [Suspect]
     Indication: DRUG ABUSE
  6. DILTIAZEM [Suspect]
     Indication: DRUG USE FOR UNKNOWN INDICATION
  7. MDA (METHYLENEDIOXYAMPHETAMINE) [Suspect]
     Indication: DRUG ABUSER
  8. ACETONE (ACETONE) [Suspect]
     Indication: DRUG USE FOR UNKNOWN INDICATION

REACTIONS (3)
  - LEGAL PROBLEM [None]
  - MULTIPLE DRUG OVERDOSE [None]
  - SUBSTANCE ABUSE [None]
